FAERS Safety Report 25007992 (Version 1)
Quarter: 2025Q1

REPORT INFORMATION
  Report Type: Spontaneous
  Country: US (occurrence: US)
  Receive Date: 20250225
  Receipt Date: 20250225
  Transmission Date: 20250408
  Serious: Yes (Life-Threatening, Hospitalization, Other)
  Sender: MACLEODS
  Company Number: US-MACLEODS PHARMA-MAC2025051787

PATIENT

DRUGS (1)
  1. SEVELAMER [Suspect]
     Active Substance: SEVELAMER
     Indication: Product used for unknown indication
     Dosage: WITH MEALS
     Route: 065

REACTIONS (4)
  - Lower gastrointestinal haemorrhage [Recovering/Resolving]
  - Gastrointestinal injury [Unknown]
  - Haemodynamic instability [Unknown]
  - Crystal deposit intestine [Unknown]
